FAERS Safety Report 6828803-4 (Version None)
Quarter: 2010Q3

REPORT INFORMATION
  Report Type: 
  Country: None (occurrence: None)
  Receive Date: 20100709
  Receipt Date: 20070217
  Transmission Date: 20110219
  Serious: No
  Sender: FDA-Public Use
  Company Number: US-PFIZER INC-2007014557

PATIENT
  Sex: Male
  Weight: 72.57 kg

DRUGS (2)
  1. CHANTIX [Suspect]
     Indication: EX-TOBACCO USER
     Dates: start: 20070101, end: 20070215
  2. ADVAIR DISKUS 100/50 [Concomitant]

REACTIONS (1)
  - MUSCULOSKELETAL STIFFNESS [None]
